FAERS Safety Report 13005160 (Version 1)
Quarter: 2016Q4

REPORT INFORMATION
  Report Type: Spontaneous
  Country: US (occurrence: US)
  Receive Date: 20161207
  Receipt Date: 20161207
  Transmission Date: 20170207
  Serious: Yes (Hospitalization)
  Sender: FDA-Public Use
  Company Number: US-AMGEN-USASP2016170071

PATIENT
  Age: 58 Year
  Sex: Female
  Weight: 45.4 kg

DRUGS (1)
  1. PROLIA [Suspect]
     Active Substance: DENOSUMAB
     Indication: OSTEOPOROSIS
     Dosage: 60 MG, Q6MO
     Route: 065
     Dates: start: 201608

REACTIONS (6)
  - Dyspnoea [Not Recovered/Not Resolved]
  - Pain in jaw [Not Recovered/Not Resolved]
  - Rash generalised [Not Recovered/Not Resolved]
  - Urticaria [Not Recovered/Not Resolved]
  - Arthralgia [Not Recovered/Not Resolved]
  - Migraine [Not Recovered/Not Resolved]

NARRATIVE: CASE EVENT DATE: 2016
